FAERS Safety Report 7538932-8 (Version None)
Quarter: 2011Q2

REPORT INFORMATION
  Report Type: 
  Country: None (occurrence: None)
  Receive Date: 20110610
  Receipt Date: 20080805
  Transmission Date: 20111010
  Serious: Yes (Death)
  Sender: FDA-Public Use
  Company Number: US-BAYER-US-2007-019920

PATIENT
  Age: 24 Year
  Sex: Male
  Weight: 77.551 kg

DRUGS (30)
  1. MAGNEVIST [Suspect]
     Indication: NUCLEAR MAGNETIC RESONANCE IMAGING
     Dosage: UNK, 1 DOSE
     Dates: start: 20020321, end: 20020321
  2. CELLCEPT [Concomitant]
  3. PREDNISONE [Concomitant]
  4. NORVASC [Concomitant]
  5. K-DUR [Concomitant]
  6. HECTOROL [Concomitant]
  7. PHOSLO [Concomitant]
  8. LASIX [Concomitant]
  9. NEURONTIN [Concomitant]
  10. PREVACID [Concomitant]
  11. DIFLUCAN [Concomitant]
  12. BENICAR [Concomitant]
  13. RENAGEL [Concomitant]
  14. PROGRAF [Concomitant]
  15. CARTIA XT [Concomitant]
  16. NIFEREX [Concomitant]
  17. GADODIAMIDE [Suspect]
     Indication: NUCLEAR MAGNETIC RESONANCE IMAGING
     Dosage: UNK, UNK
     Route: 042
     Dates: start: 20040201, end: 20040201
  18. GADODIAMIDE [Suspect]
     Dosage: 13 ML, ONCE
     Route: 042
     Dates: start: 20040203, end: 20040203
  19. EPOGEN [Concomitant]
  20. CLONIDINE [Concomitant]
  21. DILANTIN [Concomitant]
  22. RAPAMUNE [Concomitant]
  23. ASPIRIN [Concomitant]
  24. VERAPAMIL [Concomitant]
  25. MAGNEVIST [Suspect]
     Dosage: UNK, 1 DOSE
     Route: 042
     Dates: start: 20040808, end: 20040808
  26. MAGNEVIST [Suspect]
     Dosage: UNK, ONCE
     Dates: start: 20020103, end: 20020103
  27. GADODIAMIDE [Suspect]
     Dosage: 14 ML, ONCE
     Dates: start: 20040310, end: 20040310
  28. PREDNISONE [Concomitant]
  29. BEXTRA [Concomitant]
  30. ROCALTROL [Concomitant]

REACTIONS (11)
  - SKIN HYPERTROPHY [None]
  - SKIN PLAQUE [None]
  - DRY SKIN [None]
  - SKIN TIGHTNESS [None]
  - JOINT RANGE OF MOTION DECREASED [None]
  - PAIN [None]
  - JOINT STIFFNESS [None]
  - SKIN DISCOLOURATION [None]
  - NEPHROGENIC SYSTEMIC FIBROSIS [None]
  - RASH MACULAR [None]
  - SKIN INDURATION [None]
